FAERS Safety Report 7864287-5 (Version None)
Quarter: 2011Q4

REPORT INFORMATION
  Report Type: 
  Country: None (occurrence: None)
  Receive Date: 20111028
  Receipt Date: 20110222
  Transmission Date: 20120403
  Serious: No
  Sender: FDA-Public Use
  Company Number: US-GLAXOSMITHKLINE-A0914876A

PATIENT
  Age: 74 Year
  Sex: Female

DRUGS (2)
  1. WELLBUTRIN [Concomitant]
  2. SEREVENT [Suspect]
     Indication: ASTHMA
     Dosage: 1PUFF TWICE PER DAY
     Route: 055
     Dates: start: 19990101

REACTIONS (4)
  - DYSPNOEA [None]
  - DRUG INEFFECTIVE [None]
  - INSOMNIA [None]
  - PRODUCT QUALITY ISSUE [None]
